FAERS Safety Report 21470827 (Version 1)
Quarter: 2022Q4

REPORT INFORMATION
  Report Type: Spontaneous
  Country: US (occurrence: None)
  Receive Date: 20221018
  Receipt Date: 20221018
  Transmission Date: 20230112
  Serious: Yes (Hospitalization)
  Sender: FDA-Public Use
  Company Number: US-ROCHE-3202090

PATIENT
  Age: 82 Year
  Sex: Male

DRUGS (1)
  1. ESBRIET [Suspect]
     Active Substance: PIRFENIDONE
     Indication: Cough
     Route: 048
     Dates: start: 20200623

REACTIONS (4)
  - Pelvic fracture [Recovering/Resolving]
  - Upper limb fracture [Recovering/Resolving]
  - Rib fracture [Recovering/Resolving]
  - Weight bearing difficulty [Recovering/Resolving]
